FAERS Safety Report 26208818 (Version 1)
Quarter: 2025Q4

REPORT INFORMATION
  Report Type: Spontaneous
  Country: US (occurrence: None)
  Receive Date: 20251228
  Receipt Date: 20251228
  Transmission Date: 20260119
  Serious: Yes (Other)
  Sender: FDA-CTU
  Company Number: None

PATIENT
  Age: 41 Year
  Sex: Female

DRUGS (2)
  1. CYANOCOBALAMIN\TIRZEPATIDE [Suspect]
     Active Substance: CYANOCOBALAMIN\TIRZEPATIDE
     Indication: Polycystic ovarian syndrome
     Dosage: 50 UNITS ONCE WEEKLY SUBCUTANEOUS
     Route: 058
     Dates: start: 20251204, end: 20251219
  2. CYANOCOBALAMIN\TIRZEPATIDE [Suspect]
     Active Substance: CYANOCOBALAMIN\TIRZEPATIDE
     Indication: Obesity

REACTIONS (7)
  - Injection site rash [None]
  - Blister [None]
  - Herpes zoster [None]
  - Skin exfoliation [None]
  - Suspected product contamination [None]
  - Injection site pain [None]
  - Legal problem [None]

NARRATIVE: CASE EVENT DATE: 20251209
